FAERS Safety Report 7591891-4 (Version None)
Quarter: 2011Q3

REPORT INFORMATION
  Report Type: 
  Country: None (occurrence: None)
  Receive Date: 20110701
  Receipt Date: 20110701
  Transmission Date: 20111222
  Serious: No
  Sender: FDA-Public Use
  Company Number: None

PATIENT

DRUGS (2)
  1. CRESTOR [Concomitant]
  2. NIASPAN [Suspect]
     Dosage: 500MG DAILY

REACTIONS (4)
  - BURNING SENSATION [None]
  - FLUSHING [None]
  - TRANSIENT GLOBAL AMNESIA [None]
  - ERYTHEMA [None]
